FAERS Safety Report 4726706-2 (Version None)
Quarter: 2005Q3

REPORT INFORMATION
  Report Type: 
  Country: None (occurrence: None)
  Receive Date: 20050725
  Receipt Date: 20050303
  Transmission Date: 20060218
  Serious: No
  Sender: FDA-Public Use
  Company Number: USA040977929

PATIENT
  Age: 54 Year
  Sex: Male
  Weight: 102 kg

DRUGS (6)
  1. PROZAC [Suspect]
     Dosage: 20 MG
  2. STRATTERA [Suspect]
     Indication: ATTENTION DEFICIT/HYPERACTIVITY DISORDER
     Dosage: 40 MG DAY
     Dates: start: 20040401
  3. ATENOLOL [Concomitant]
  4. WELLBUTRIN [Concomitant]
  5. CLONIDINE [Concomitant]
  6. ZOLOFT [Concomitant]

REACTIONS (9)
  - BLOOD IRON DECREASED [None]
  - COUGH [None]
  - DRUG EFFECT DECREASED [None]
  - EXCITABILITY [None]
  - FATIGUE [None]
  - NIGHTMARE [None]
  - OESOPHAGITIS [None]
  - THROAT IRRITATION [None]
  - THROAT TIGHTNESS [None]
